FAERS Safety Report 8834660 (Version 1)
Quarter: 2012Q4

REPORT INFORMATION
  Report Type: Spontaneous
  Country: US (occurrence: None)
  Receive Date: 20120920
  Receipt Date: 20120920
  Transmission Date: 20130627
  Serious: Yes (Hospitalization)
  Sender: FDA-Public Use
  Company Number: 2012PROUSA01786

PATIENT
  Age: 69 Year
  Sex: Male
  Weight: 112.9 kg

DRUGS (10)
  1. PROVENGE (SIPULEUCEL-T) SUSPENSION, 250ML [Suspect]
     Indication: PROSTATE CANCER METASTATIC
     Route: 042
     Dates: start: 20120706, end: 20120706
  2. NORVASC (AMLODIPINE BESILATE) [Concomitant]
  3. ASA (ACETYLSALICYLIC ACID) [Concomitant]
  4. IMURAN (AZATHIOPRINE) [Concomitant]
  5. PLAVIX (CLOPIDOGREL BISULFATE) [Concomitant]
  6. METAGLIP (GLIPIZIDE, METFORMIN HYDROCHLORIDE) [Concomitant]
  7. REMICADE (INFLIXIMAB) [Concomitant]
  8. LEVOTHYROXINE (LEVOTHYROXINE SODIUM) [Concomitant]
  9. METOPROLOL SUCCINATE (METOPROLOL SUCCINATE) [Concomitant]
  10. RANITIDINE (RANITIDINE HYDROCHLORIDE) [Concomitant]

REACTIONS (7)
  - Acute respiratory failure [None]
  - Infusion related reaction [None]
  - Chills [None]
  - Nausea [None]
  - Vomiting [None]
  - Bronchospasm [None]
  - Pulmonary oedema [None]
